FAERS Safety Report 9681199 (Version 1)
Quarter: 2013Q4

REPORT INFORMATION
  Report Type: Report from Study
  Country: KR (occurrence: KR)
  Receive Date: 20131111
  Receipt Date: 20131111
  Transmission Date: 20140711
  Serious: Yes (Hospitalization)
  Sender: FDA-Public Use
  Company Number: KR-SA-2013SA112548

PATIENT
  Age: 63 Year
  Sex: Male
  Weight: 60 kg

DRUGS (1)
  1. LANTUS [Suspect]
     Indication: DIABETES MELLITUS
     Dosage: DOSE:32 UNIT(S)
     Route: 058

REACTIONS (4)
  - Pneumonia [Recovered/Resolved]
  - Toe amputation [Unknown]
  - Diabetes mellitus [Recovered/Resolved with Sequelae]
  - Loss of consciousness [Recovered/Resolved]
